FAERS Safety Report 18657517 (Version 1)
Quarter: 2020Q4

REPORT INFORMATION
  Report Type: Spontaneous
  Country: US (occurrence: US)
  Receive Date: 20201224
  Receipt Date: 20201224
  Transmission Date: 20210114
  Serious: Yes (Other)
  Sender: FDA-Public Use
  Company Number: US-SA-2020SA361417

PATIENT

DRUGS (2)
  1. DIPHENHYDRAMINE. [Suspect]
     Active Substance: DIPHENHYDRAMINE
     Dosage: 625 MG
  2. ACETAMINOPHEN. [Suspect]
     Active Substance: ACETAMINOPHEN

REACTIONS (3)
  - Electrocardiogram QT prolonged [Recovered/Resolved]
  - Electrocardiogram T wave abnormal [Recovered/Resolved]
  - Overdose [Recovered/Resolved]
